FAERS Safety Report 22339574 (Version 1)
Quarter: 2023Q2

REPORT INFORMATION
  Report Type: Report from Study
  Country: CA (occurrence: CA)
  Receive Date: 20230518
  Receipt Date: 20230518
  Transmission Date: 20230721
  Serious: Yes (Other)
  Sender: FDA-Public Use
  Company Number: CA-MYLANLABS-2022M1131297

PATIENT
  Sex: Female
  Weight: 43.54 kg

DRUGS (5)
  1. HULIO [Suspect]
     Active Substance: ADALIMUMAB-FKJP
     Indication: Rheumatoid arthritis
     Dosage: 40 MILLIGRAM, BIWEEKLY
     Route: 058
     Dates: start: 20221118
  2. HULIO [Suspect]
     Active Substance: ADALIMUMAB-FKJP
     Dosage: 40 MILLIGRAM, QW (EVERY 7 DAYS)
     Route: 058
  3. HULIO [Suspect]
     Active Substance: ADALIMUMAB-FKJP
     Dosage: WEEKLY
     Route: 058
     Dates: start: 20221118
  4. HULIO [Suspect]
     Active Substance: ADALIMUMAB-FKJP
     Dosage: 20 MILLIGRAM, QW
     Route: 065
  5. HYDROXYCHLOROQUINE [Concomitant]
     Active Substance: HYDROXYCHLOROQUINE
     Indication: Product used for unknown indication
     Dosage: UNK
     Route: 065

REACTIONS (17)
  - Systemic lupus erythematosus [Unknown]
  - Arthritis [Unknown]
  - Arthralgia [Unknown]
  - Insomnia [Unknown]
  - Hypoaesthesia [Unknown]
  - Pain [Recovered/Resolved]
  - Paraesthesia [Unknown]
  - Pruritus [Unknown]
  - Urinary tract infection [Unknown]
  - Headache [Unknown]
  - Fatigue [Unknown]
  - Hot flush [Unknown]
  - Butterfly rash [Unknown]
  - Myalgia [Unknown]
  - Condition aggravated [Unknown]
  - Drug intolerance [Unknown]
  - Incorrect dose administered [Unknown]
